FAERS Safety Report 9898756 (Version 2)
Quarter: 2014Q1

REPORT INFORMATION
  Report Type: Spontaneous
  Country: US (occurrence: US)
  Receive Date: 20140214
  Receipt Date: 20140214
  Transmission Date: 20141002
  Serious: No
  Sender: FDA-Public Use
  Company Number: US-GILEAD-2011-0044359

PATIENT
  Age: 77 Year
  Sex: Female

DRUGS (14)
  1. LETAIRIS [Suspect]
     Indication: PULMONARY HYPERTENSION
     Dosage: 5 MG, UNK
     Route: 048
     Dates: start: 20110916, end: 20110925
  2. LETAIRIS [Suspect]
     Indication: AORTIC VALVE REPLACEMENT
  3. LETAIRIS [Suspect]
     Indication: AORTIC STENOSIS
  4. VITAMIN D NOS [Concomitant]
  5. ALBUTEROL                          /00139501/ [Concomitant]
  6. SYNTHROID [Concomitant]
  7. LIPITOR [Concomitant]
  8. CHONDROITIN W/GLUCOSAMINE          /02118501/ [Concomitant]
  9. FISH OIL [Concomitant]
  10. VESICARE [Concomitant]
  11. ADCIRCA [Concomitant]
  12. COUMADIN                           /00014802/ [Concomitant]
     Indication: ATRIAL FIBRILLATION
  13. FAMOTIDINE [Concomitant]
  14. LEXAPRO [Concomitant]

REACTIONS (4)
  - Nasal oedema [Not Recovered/Not Resolved]
  - Ocular hyperaemia [Not Recovered/Not Resolved]
  - Eye swelling [Recovered/Resolved]
  - Oedema peripheral [Unknown]
